FAERS Safety Report 6877102-3 (Version None)
Quarter: 2010Q3

REPORT INFORMATION
  Report Type: 
  Country: None (occurrence: None)
  Receive Date: 20100727
  Receipt Date: 20100713
  Transmission Date: 20110219
  Serious: Yes (Hospitalization)
  Sender: FDA-Public Use
  Company Number: JP-GENENTECH-304409

PATIENT
  Sex: Male
  Weight: 105 kg

DRUGS (43)
  1. XOLAIR [Suspect]
     Indication: ASTHMA
     Dosage: 300 MG, 1/MONTH
     Route: 058
     Dates: start: 20090519
  2. MEDROL [Suspect]
     Indication: ASTHMA
     Dosage: 24 MG, QD
     Route: 048
     Dates: start: 20081122, end: 20081130
  3. MEDROL [Suspect]
     Dosage: 20 MG, QD
     Route: 048
     Dates: start: 20081201, end: 20081207
  4. MEDROL [Suspect]
     Dosage: 16 MG, QD
     Route: 048
     Dates: start: 20081208, end: 20081209
  5. MEDROL [Suspect]
     Dosage: 24 MG, QD
     Route: 048
     Dates: start: 20081210, end: 20081215
  6. MEDROL [Suspect]
     Dosage: 20 MG, QD
     Route: 048
     Dates: start: 20081216, end: 20081225
  7. MEDROL [Suspect]
     Dosage: 16 MG, QD
     Route: 048
     Dates: start: 20090106, end: 20090508
  8. MEDROL [Suspect]
     Dosage: 40 MG, QD
     Route: 048
     Dates: start: 20090521, end: 20090810
  9. MEDROL [Suspect]
     Dosage: 16 MG, QD
     Route: 048
     Dates: start: 20090811, end: 20091004
  10. MEDROL [Suspect]
     Dosage: 32 MG, QD
     Route: 048
     Dates: start: 20091005, end: 20091005
  11. MEDROL [Suspect]
     Dosage: 28 MG, QD
     Route: 048
     Dates: start: 20091006, end: 20091019
  12. MEDROL [Suspect]
     Dosage: 20 MG, QD
     Route: 048
     Dates: start: 20091020, end: 20091116
  13. MEDROL [Suspect]
     Dosage: 16 MG, QD
     Route: 048
     Dates: start: 20091117, end: 20091130
  14. MEDROL [Suspect]
     Dosage: 24 MG, QD
     Route: 048
     Dates: start: 20091201, end: 20091227
  15. MEDROL [Suspect]
     Dosage: 16 MG, QD
     Route: 048
     Dates: start: 20091228, end: 20100202
  16. MEDROL [Suspect]
     Dosage: 12 MG, QD
     Route: 048
     Dates: start: 20100223, end: 20100405
  17. MEDROL [Suspect]
     Dosage: 8 MG, QD
     Route: 048
     Dates: start: 20100406, end: 20100427
  18. MEDROL [Suspect]
     Dosage: 40 MG, QD
     Route: 048
     Dates: start: 20100428, end: 20100503
  19. MEDROL [Suspect]
     Dosage: 20 MG, QD
     Route: 048
     Dates: start: 20100504, end: 20100510
  20. MEDROL [Suspect]
     Dosage: 16 MG, QD
     Route: 048
     Dates: start: 20100511, end: 20100517
  21. MEDROL [Suspect]
     Dosage: 12 MG, QD
     Route: 048
     Dates: start: 20100518
  22. PULMICORT [Concomitant]
     Indication: PRODUCT USED FOR UNKNOWN INDICATION
     Dosage: UNK
     Dates: start: 20081101, end: 20100125
  23. QVAR 40 [Concomitant]
     Indication: PRODUCT USED FOR UNKNOWN INDICATION
     Dosage: UNK
     Dates: start: 20020801
  24. HOKUNALIN [Concomitant]
     Indication: PRODUCT USED FOR UNKNOWN INDICATION
     Dosage: UNK
     Dates: start: 20081101, end: 20100125
  25. SINGULAIR [Concomitant]
     Indication: PRODUCT USED FOR UNKNOWN INDICATION
     Dosage: UNK
     Dates: start: 20030901
  26. UNIPHYL [Concomitant]
     Indication: PRODUCT USED FOR UNKNOWN INDICATION
     Dosage: UNK
     Dates: start: 20081101
  27. SALBUTAMOL SULFATE [Concomitant]
     Indication: PRODUCT USED FOR UNKNOWN INDICATION
     Dosage: UNK
     Dates: start: 20081122
  28. LAMISIL [Concomitant]
     Indication: PRODUCT USED FOR UNKNOWN INDICATION
     Dosage: UNK
     Dates: start: 20090520, end: 20090601
  29. BISOPROLOL FUMARATE [Concomitant]
     Indication: PRODUCT USED FOR UNKNOWN INDICATION
     Dosage: UNK
     Dates: start: 20090520
  30. LEVOTHYROXINE SODIUM [Concomitant]
     Indication: PRODUCT USED FOR UNKNOWN INDICATION
     Dosage: UNK
     Dates: start: 20090520
  31. HERBESSER [Concomitant]
     Indication: PRODUCT USED FOR UNKNOWN INDICATION
     Dosage: UNK
     Dates: start: 20090520
  32. BACTRAMIN [Concomitant]
     Indication: PRODUCT USED FOR UNKNOWN INDICATION
     Dosage: UNK
     Dates: end: 20090520
  33. TAKEPRON [Concomitant]
     Indication: PRODUCT USED FOR UNKNOWN INDICATION
     Dosage: UNK
     Dates: end: 20090520
  34. SUNRYTHM [Concomitant]
     Indication: PRODUCT USED FOR UNKNOWN INDICATION
     Dosage: UNK
     Dates: end: 20100520
  35. ALESION [Concomitant]
     Indication: PRODUCT USED FOR UNKNOWN INDICATION
     Dosage: UNK
     Dates: start: 20090520, end: 20100420
  36. FOSAMAX [Concomitant]
     Indication: PRODUCT USED FOR UNKNOWN INDICATION
     Dosage: 35 MG, UNK
     Dates: start: 20090520
  37. CELECOXIB [Concomitant]
     Indication: PRODUCT USED FOR UNKNOWN INDICATION
     Dosage: UNK
     Dates: start: 20100520, end: 20100713
  38. LOXONIN [Concomitant]
     Indication: PRODUCT USED FOR UNKNOWN INDICATION
     Dosage: UNK
     Dates: end: 20090605
  39. MUCOSTA [Concomitant]
     Indication: PRODUCT USED FOR UNKNOWN INDICATION
     Dosage: UNK
     Dates: end: 20090605
  40. SULTANOL [Concomitant]
     Indication: PRODUCT USED FOR UNKNOWN INDICATION
     Dosage: UNK
     Dates: end: 20091201
  41. MORPHINE HYDROCHLORIDE [Concomitant]
     Indication: PRODUCT USED FOR UNKNOWN INDICATION
     Dosage: UNK
     Dates: end: 20090811
  42. DUROTEP [Concomitant]
     Indication: PRODUCT USED FOR UNKNOWN INDICATION
     Dosage: UNK
     Dates: start: 20100223
  43. ANTIASTHMATIC DRUG NOS [Concomitant]
     Indication: PRODUCT USED FOR UNKNOWN INDICATION
     Dosage: UNK
     Dates: start: 20100126

REACTIONS (10)
  - ALANINE AMINOTRANSFERASE INCREASED [None]
  - ARTHRITIS [None]
  - ASPARTATE AMINOTRANSFERASE INCREASED [None]
  - ASTHMA [None]
  - BLOOD ALKALINE PHOSPHATASE INCREASED [None]
  - BLOOD LACTATE DEHYDROGENASE INCREASED [None]
  - DERMATITIS CONTACT [None]
  - DIARRHOEA [None]
  - GAMMA-GLUTAMYLTRANSFERASE INCREASED [None]
  - INFLUENZA [None]
